FAERS Safety Report 8309866-6 (Version None)
Quarter: 2012Q2

REPORT INFORMATION
  Report Type: 
  Country: None (occurrence: None)
  Receive Date: 20120425
  Receipt Date: 20120420
  Transmission Date: 20120825
  Serious: Yes (Death)
  Sender: FDA-Public Use
  Company Number: PHHY2012DE034587

PATIENT
  Age: 67 Year
  Sex: Male

DRUGS (2)
  1. IMATINIB MESYLATE [Suspect]
     Dosage: 600 MG, DAILY
     Route: 048
  2. IMATINIB MESYLATE [Suspect]
     Indication: GASTROINTESTINAL STROMAL TUMOUR
     Dosage: 400 MG, DAILY
     Route: 048

REACTIONS (3)
  - NEOPLASM PROGRESSION [None]
  - INTRA-ABDOMINAL HAEMORRHAGE [None]
  - NEOPLASM MALIGNANT [None]
